FAERS Safety Report 16068334 (Version 3)
Quarter: 2019Q2

REPORT INFORMATION
  Report Type: Report from Study
  Country: FR (occurrence: FR)
  Receive Date: 20190313
  Receipt Date: 20190408
  Transmission Date: 20190711
  Serious: Yes (Death, Other)
  Sender: FDA-Public Use
  Company Number: FR-JAZZ-2019-FR-003446

PATIENT

DRUGS (1)
  1. DEFITELIO [Suspect]
     Active Substance: DEFIBROTIDE SODIUM
     Indication: VENOOCCLUSIVE DISEASE
     Dosage: 25 MG/KG, QD
     Route: 042
     Dates: start: 20180101, end: 20180104

REACTIONS (4)
  - Multiple organ dysfunction syndrome [Fatal]
  - Haemorrhage [Unknown]
  - Septic shock [Fatal]
  - Drug ineffective [Unknown]

NARRATIVE: CASE EVENT DATE: 201801
